FAERS Safety Report 8594223-8 (Version None)
Quarter: 2012Q3

REPORT INFORMATION
  Report Type: 
  Country: None (occurrence: None)
  Receive Date: 20120814
  Receipt Date: 20120229
  Transmission Date: 20120928
  Serious: Yes (Hospitalization)
  Sender: FDA-Public Use
  Company Number: PHEH2012US015260

PATIENT
  Sex: Male

DRUGS (4)
  1. EXFORGE [Suspect]
     Dosage: 1 DF, QD (320 MG VALS AND 5 MG AMLO)
  2. TRILIPIX [Concomitant]
  3. CLONIDINE [Concomitant]
  4. CARDIZEM LA [Concomitant]

REACTIONS (3)
  - BLOOD POTASSIUM ABNORMAL [None]
  - DEVICE DISLOCATION [None]
  - BLOOD TESTOSTERONE DECREASED [None]
